FAERS Safety Report 8048978-1 (Version None)
Quarter: 2012Q1

REPORT INFORMATION
  Report Type: 
  Country: None (occurrence: None)
  Receive Date: 20120110
  Receipt Date: 20111230
  Transmission Date: 20120608
  Serious: Yes (Other)
  Sender: FDA-Public Use
  Company Number: AUR-APL-2011-05958

PATIENT
  Age: 22 Year
  Sex: Female

DRUGS (3)
  1. ORPHENADRINE CITRATE [Concomitant]
  2. RISPERIDONE [Suspect]
     Indication: DISTURBANCE IN SOCIAL BEHAVIOUR
     Dosage: (1.5 MG), ORAL
     Route: 048
     Dates: start: 20100708, end: 20100929
  3. ESCITALOPRAM OXALATE [Suspect]
     Indication: ANXIETY
     Dosage: 10 MG (10 MG, 1 IN 1 D), ORAL
     Route: 048
     Dates: start: 20101125

REACTIONS (4)
  - ANXIETY [None]
  - OCULOGYRIC CRISIS [None]
  - DISTURBANCE IN SOCIAL BEHAVIOUR [None]
  - DISEASE RECURRENCE [None]
